FAERS Safety Report 9390673 (Version 1)
Quarter: 2013Q3

REPORT INFORMATION
  Report Type: Spontaneous
  Country: US (occurrence: US)
  Receive Date: 20130709
  Receipt Date: 20130709
  Transmission Date: 20140515
  Serious: No
  Sender: FDA-Public Use
  Company Number: US-BAYER-2013-083205

PATIENT
  Sex: Female

DRUGS (3)
  1. ALEVE CAPLET [Suspect]
     Indication: HEADACHE
  2. TYLENOL [PARACETAMOL] [Concomitant]
  3. VICODIN [Concomitant]

REACTIONS (1)
  - Blood pressure abnormal [None]
